FAERS Safety Report 19313677 (Version 1)
Quarter: 2021Q2

REPORT INFORMATION
  Report Type: Spontaneous
  Country: US (occurrence: US)
  Receive Date: 20210527
  Receipt Date: 20210527
  Transmission Date: 20210717
  Serious: No
  Sender: FDA-Public Use
  Company Number: None

PATIENT
  Age: 84 Year
  Sex: Female

DRUGS (1)
  1. TABRECTA [Suspect]
     Active Substance: CAPMATINIB
     Indication: LUNG CARCINOMA CELL TYPE UNSPECIFIED STAGE 0
     Dosage: 200MG/400MG BID ORAL
     Route: 048
     Dates: start: 202103, end: 20210527

REACTIONS (4)
  - Peripheral swelling [None]
  - Fatigue [None]
  - Therapy cessation [None]
  - Dizziness [None]

NARRATIVE: CASE EVENT DATE: 20210504
